FAERS Safety Report 14110507 (Version 1)
Quarter: 2017Q4

REPORT INFORMATION
  Report Type: Spontaneous
  Country: US (occurrence: US)
  Receive Date: 20171020
  Receipt Date: 20171020
  Transmission Date: 20180321
  Serious: Yes (Hospitalization)
  Sender: FDA-Public Use
  Company Number: US-FRESENIUS MEDICAL CARE RENAL THERAPIES GROUP-FMC-1709-001157

PATIENT
  Sex: Male
  Weight: 84.5 kg

DRUGS (1)
  1. DELFLEX [Suspect]
     Active Substance: CALCIUM CHLORIDE\DEXTROSE\MAGNESIUM CHLORIDE\SODIUM CHLORIDE\SODIUM LACTATE
     Indication: END STAGE RENAL DISEASE
     Route: 033
     Dates: start: 20150705, end: 20170915

REACTIONS (4)
  - Treatment noncompliance [Recovered/Resolved]
  - Inguinal hernia [Unknown]
  - Fluid overload [Recovered/Resolved]
  - Peritonitis [Recovering/Resolving]
